FAERS Safety Report 4340445-1 (Version None)
Quarter: 2004Q2

REPORT INFORMATION
  Report Type: 
  Country: None (occurrence: None)
  Receive Date: 20040414
  Receipt Date: 20040405
  Transmission Date: 20050107
  Serious: Yes (Disabling)
  Sender: FDA-Public Use
  Company Number: NSADSS2002024051

PATIENT
  Age: 50 Year
  Sex: Male
  Weight: 55 kg

DRUGS (1)
  1. LEVOFLOXACIN [Suspect]
     Indication: ACUTE SINUSITIS
     Dosage: 500 MG, 1 IN 1 DAY, ORAL
     Route: 048
     Dates: start: 20020301, end: 20020301

REACTIONS (7)
  - ARTHRALGIA [None]
  - CHONDROPATHY [None]
  - KNEE DEFORMITY [None]
  - PAIN [None]
  - PATELLOFEMORAL PAIN SYNDROME [None]
  - PSYCHOMOTOR HYPERACTIVITY [None]
  - TENDONITIS [None]
